FAERS Safety Report 13693081 (Version 1)
Quarter: 2017Q2

REPORT INFORMATION
  Report Type: Report from Study
  Country: TW (occurrence: TW)
  Receive Date: 20170627
  Receipt Date: 20170627
  Transmission Date: 20170830
  Serious: Yes (Other)
  Sender: FDA-Public Use
  Company Number: TW-ROCHE-1955502

PATIENT
  Age: 82 Year
  Sex: Female

DRUGS (1)
  1. ACTILYSE [Suspect]
     Active Substance: ALTEPLASE
     Indication: ISCHAEMIC STROKE
     Dosage: DOSE: 0.9 MG/KG GIVEN WITHIN 3 HOURS
     Route: 042

REACTIONS (1)
  - Cerebral haematoma [Unknown]
